FAERS Safety Report 6439678-X (Version None)
Quarter: 2009Q4

REPORT INFORMATION
  Report Type: 
  Country: None (occurrence: None)
  Receive Date: 20091113
  Receipt Date: 20091103
  Transmission Date: 20100525
  Serious: Yes (Other)
  Sender: FDA-Public Use
  Company Number: BR-PFIZER INC-2009287279

PATIENT
  Sex: Male

DRUGS (1)
  1. DOSTINEX [Suspect]
     Dosage: UNK
     Route: 048

REACTIONS (3)
  - PAIN [None]
  - PRODUCT COATING ISSUE [None]
  - VISUAL ACUITY REDUCED [None]
